FAERS Safety Report 4771558-8 (Version None)
Quarter: 2005Q3

REPORT INFORMATION
  Report Type: 
  Country: None (occurrence: None)
  Receive Date: 20050914
  Receipt Date: 20050914
  Transmission Date: 20060218
  Serious: Yes (Disabling)
  Sender: FDA-Public Use
  Company Number: None

PATIENT
  Age: 57 Year
  Sex: Female
  Weight: 40.8237 kg

DRUGS (2)
  1. LEVAQUIN [Suspect]
     Indication: CLOSTRIDIAL INFECTION
     Dosage: IV DRIP
     Route: 041
     Dates: start: 20050315, end: 20050330
  2. LEVAQUIN [Suspect]
     Indication: SINUSITIS
     Dosage: IV DRIP
     Route: 041
     Dates: start: 20050315, end: 20050330

REACTIONS (6)
  - ABASIA [None]
  - ARTHRALGIA [None]
  - ARTHROPATHY [None]
  - ERYTHEMA [None]
  - JOINT STIFFNESS [None]
  - JOINT SWELLING [None]
